FAERS Safety Report 4486360-4 (Version None)
Quarter: 2004Q4

REPORT INFORMATION
  Report Type: 
  Country: None (occurrence: None)
  Receive Date: 20041021
  Receipt Date: 20041012
  Transmission Date: 20050328
  Serious: Yes (Hospitalization)
  Sender: FDA-Public Use
  Company Number: HQWYE723812OCT04

PATIENT
  Age: 56 Year
  Sex: Male

DRUGS (5)
  1. CORDARONE [Suspect]
     Indication: ATRIAL FIBRILLATION
     Route: 065
     Dates: start: 20020401, end: 20020401
  2. CORDARONE [Suspect]
     Indication: ARRHYTHMIA
     Dosage: 200 MG 1X PER 1 DAY; ORAL
     Route: 048
     Dates: start: 20040430, end: 20040921
  3. NOVODIGAL (DOGOXIN) [Concomitant]
  4. ARELIX ACE (PIRETANIDE/RAMIPRIL) [Concomitant]
  5. RAMIPRIL [Concomitant]

REACTIONS (10)
  - ASTHENIA [None]
  - ATAXIA [None]
  - CONDITION AGGRAVATED [None]
  - DEPRESSION [None]
  - DIZZINESS [None]
  - DYSGRAPHIA [None]
  - FATIGUE [None]
  - HEADACHE [None]
  - MYALGIA [None]
  - PARKINSON'S DISEASE [None]
